FAERS Safety Report 6185979-2 (Version None)
Quarter: 2009Q2

REPORT INFORMATION
  Report Type: 
  Country: None (occurrence: None)
  Receive Date: 20090511
  Receipt Date: 20090506
  Transmission Date: 20091009
  Serious: Yes (Hospitalization, Other)
  Sender: FDA-Public Use
  Company Number: DE-ABBOTT-09P-062-0572008-00

PATIENT
  Sex: Female
  Weight: 46 kg

DRUGS (3)
  1. HUMIRA [Suspect]
     Indication: CROHN'S DISEASE
     Route: 058
     Dates: start: 20081030, end: 20081215
  2. LEVOTHYROXINE SODIUM [Concomitant]
     Indication: GOITRE
     Dosage: 150
  3. UNKNOWN INFUSION [Concomitant]
     Indication: DRUG USE FOR UNKNOWN INDICATION

REACTIONS (3)
  - ABORTION SPONTANEOUS [None]
  - INFECTION [None]
  - NASOPHARYNGITIS [None]
